FAERS Safety Report 16923735 (Version 1)
Quarter: 2019Q4

REPORT INFORMATION
  Report Type: Report from Study
  Country: ES (occurrence: ES)
  Receive Date: 20191016
  Receipt Date: 20191016
  Transmission Date: 20200122
  Serious: Yes (Life-Threatening, Hospitalization)
  Sender: FDA-Public Use
  Company Number: ES-ACCORD-157733

PATIENT
  Age: 77 Year
  Sex: Female

DRUGS (2)
  1. PREDNISONE. [Interacting]
     Active Substance: PREDNISONE
     Indication: ARTHRITIS
     Route: 048
     Dates: start: 20180227
  2. METHOTREXATE. [Suspect]
     Active Substance: METHOTREXATE
     Indication: ARTHRITIS
     Route: 048
     Dates: start: 20180313, end: 20180515

REACTIONS (2)
  - Drug interaction [Unknown]
  - Herpes zoster disseminated [Recovered/Resolved with Sequelae]

NARRATIVE: CASE EVENT DATE: 20180511
